FAERS Safety Report 23637926 (Version 3)
Quarter: 2024Q2

REPORT INFORMATION
  Report Type: Spontaneous
  Country: US (occurrence: US)
  Receive Date: 20240315
  Receipt Date: 20240507
  Transmission Date: 20240716
  Serious: Yes (Hospitalization)
  Sender: FDA-Public Use
  Company Number: US-SEPTODONT-2024018452

PATIENT
  Age: 15 Year
  Sex: Female

DRUGS (1)
  1. EPINEPHRINE BITARTRATE\LIDOCAINE HYDROCHLORIDE [Suspect]
     Active Substance: EPINEPHRINE BITARTRATE\LIDOCAINE HYDROCHLORIDE
     Indication: Dental local anaesthesia
     Dosage: 1 CARTRIDGE.
     Route: 004
     Dates: start: 20240215, end: 20240215

REACTIONS (4)
  - Injection site swelling [Recovering/Resolving]
  - Injection site infection [Recovering/Resolving]
  - Oral infection [Recovering/Resolving]
  - Lip infection [Recovering/Resolving]

NARRATIVE: CASE EVENT DATE: 20240101
